FAERS Safety Report 17753950 (Version 3)
Quarter: 2020Q3

REPORT INFORMATION
  Report Type: Report from Study
  Country: US (occurrence: US)
  Receive Date: 20200507
  Receipt Date: 20200706
  Transmission Date: 20201102
  Serious: Yes (Hospitalization)
  Sender: FDA-Public Use
  Company Number: US-SHIRE-US202015607

PATIENT
  Sex: Female

DRUGS (2)
  1. GATTEX [Suspect]
     Active Substance: TEDUGLUTIDE\WATER
     Dosage: 0.3400 MILLILITER; 1X/DAY:QD
     Route: 058
     Dates: start: 20200121
  2. GATTEX [Suspect]
     Active Substance: TEDUGLUTIDE\WATER
     Indication: SHORT-BOWEL SYNDROME
     Dosage: 0.3400 UNIT UNKNOWN
     Route: 058
     Dates: start: 20191008

REACTIONS (4)
  - Abdominal pain upper [Unknown]
  - Hospitalisation [Unknown]
  - Lipids increased [Unknown]
  - Abdominal pain [Unknown]
